FAERS Safety Report 25747104 (Version 2)
Quarter: 2025Q3

REPORT INFORMATION
  Report Type: Spontaneous
  Country: US (occurrence: US)
  Receive Date: 20250901
  Receipt Date: 20250923
  Transmission Date: 20251021
  Serious: No
  Sender: SANOFI AVENTIS
  Company Number: US-SA-2025SA259710

PATIENT
  Age: 47 Year
  Sex: Male

DRUGS (2)
  1. DUPIXENT [Suspect]
     Active Substance: DUPILUMAB
     Indication: Dermatitis atopic
     Route: 058
     Dates: start: 202408, end: 202408
  2. DUPIXENT [Suspect]
     Active Substance: DUPILUMAB
     Indication: Eczema
     Dosage: 300 MG, QOW
     Route: 058
     Dates: start: 2024

REACTIONS (4)
  - Dermatitis atopic [Recovered/Resolved]
  - Product dose omission in error [Recovered/Resolved]
  - Rebound effect [Recovered/Resolved]
  - Eczema [Not Recovered/Not Resolved]

NARRATIVE: CASE EVENT DATE: 20250101
